FAERS Safety Report 22591402 (Version 1)
Quarter: 2023Q2

REPORT INFORMATION
  Report Type: Spontaneous
  Country: PL (occurrence: PL)
  Receive Date: 20230612
  Receipt Date: 20230612
  Transmission Date: 20230721
  Serious: Yes (Other)
  Sender: FDA-Public Use
  Company Number: PL-ROCHE-3359308

PATIENT
  Age: 46 Year
  Sex: Female

DRUGS (1)
  1. RITUXIMAB [Suspect]
     Active Substance: RITUXIMAB
     Indication: Neuromyelitis optica spectrum disorder
     Route: 065

REACTIONS (7)
  - Dystonia [Unknown]
  - Paresis [Unknown]
  - Loss of proprioception [Unknown]
  - Sensory disturbance [Unknown]
  - Monoparesis [Unknown]
  - Ataxia [Unknown]
  - Off label use [Unknown]
